FAERS Safety Report 10904669 (Version 1)
Quarter: 2015Q1

REPORT INFORMATION
  Report Type: Spontaneous
  Country: US (occurrence: None)
  Receive Date: 20150309
  Receipt Date: 20150309
  Transmission Date: 20150721
  Serious: Yes (Death)
  Sender: FDA-Public Use
  Company Number: None

PATIENT
  Age: 81 Year
  Sex: Male
  Weight: 75.3 kg

DRUGS (1)
  1. STOOL OPEN BIOME [Suspect]
     Active Substance: FECAL MICROBIOTA
     Indication: CLOSTRIDIUM DIFFICILE INFECTION
     Dosage: 250 ML X1 COLONOSCOPY
     Dates: start: 20150227

REACTIONS (3)
  - Malaise [None]
  - Acidosis [None]
  - Hypoxia [None]

NARRATIVE: CASE EVENT DATE: 20150301
